FAERS Safety Report 11409242 (Version 2)
Quarter: 2015Q3

REPORT INFORMATION
  Report Type: Spontaneous
  Country: GB (occurrence: GB)
  Receive Date: 20150824
  Receipt Date: 20150831
  Transmission Date: 20151125
  Serious: Yes (Hospitalization)
  Sender: FDA-Public Use
  Company Number: GB-009507513-1508GBR008917

PATIENT
  Sex: Male

DRUGS (2)
  1. ERTAPENEM SODIUM [Suspect]
     Active Substance: ERTAPENEM SODIUM
     Dosage: 1 G, QD
     Route: 042
  2. TEICOPLANIN [Suspect]
     Active Substance: TEICOPLANIN
     Dosage: 200 MG, QD
     Route: 042

REACTIONS (7)
  - Anaemia [Unknown]
  - Confusional state [Unknown]
  - Fall [Unknown]
  - Arterial injury [Unknown]
  - Oedema [Unknown]
  - Circumstance or information capable of leading to device use error [Unknown]
  - Limb injury [Unknown]

NARRATIVE: CASE EVENT DATE: 20150817
